FAERS Safety Report 4789524-5 (Version None)
Quarter: 2005Q4

REPORT INFORMATION
  Report Type: 
  Country: None (occurrence: None)
  Receive Date: 20051005
  Receipt Date: 20051005
  Transmission Date: 20060501
  Serious: Yes (Life-Threatening, Hospitalization)
  Sender: FDA-Public Use
  Company Number: None

PATIENT
  Age: 79 Year
  Sex: Female

DRUGS (8)
  1. NAPROXEN [Suspect]
     Indication: ARTHRITIS
     Dosage: 375 MG PO TID
     Route: 048
  2. LISINOPRIL [Concomitant]
  3. RANITIDINE [Concomitant]
  4. TRIAMTERENE [Concomitant]
  5. HYDROCHLOROTHIAZIDE [Concomitant]
  6. ASPIRIN [Concomitant]
  7. DILTIAZEM [Concomitant]
  8. CALCIUM GLUCONATE [Concomitant]

REACTIONS (9)
  - ABASIA [None]
  - ABDOMINAL PAIN UPPER [None]
  - BLOOD CREATININE INCREASED [None]
  - DIZZINESS [None]
  - HAEMATOCHEZIA [None]
  - HAEMORRHAGE [None]
  - HELICOBACTER GASTRITIS [None]
  - ULCER [None]
  - VOMITING [None]
